FAERS Safety Report 19034934 (Version 1)
Quarter: 2021Q1

REPORT INFORMATION
  Report Type: Spontaneous
  Country: BR (occurrence: BR)
  Receive Date: 20210320
  Receipt Date: 20210320
  Transmission Date: 20210420
  Serious: Yes (Other)
  Sender: FDA-Public Use
  Company Number: BR-TAKEDA-2021TUS015391

PATIENT
  Sex: Male

DRUGS (1)
  1. ENTYVIO [Suspect]
     Active Substance: VEDOLIZUMAB
     Indication: PRODUCT USED FOR UNKNOWN INDICATION
     Dosage: 300 MILLIGRAM
     Route: 042

REACTIONS (29)
  - Oral pain [Unknown]
  - Paraesthesia [Unknown]
  - Back pain [Unknown]
  - Muscular weakness [Unknown]
  - Anal infection [Unknown]
  - Muscle contractions involuntary [Unknown]
  - Pain in extremity [Unknown]
  - Cough [Unknown]
  - Constipation [Unknown]
  - Acne [Unknown]
  - Influenza [Unknown]
  - Nausea [Unknown]
  - Respiratory tract infection [Unknown]
  - Pyrexia [Unknown]
  - Blood pressure increased [Unknown]
  - Nasal congestion [Unknown]
  - Night sweats [Unknown]
  - Fatigue [Unknown]
  - Dyspepsia [Unknown]
  - Abdominal distension [Unknown]
  - Eczema [Unknown]
  - Sinusitis [Unknown]
  - Gastrointestinal inflammation [Unknown]
  - Rash [Unknown]
  - Bronchitis [Unknown]
  - Oropharyngeal pain [Unknown]
  - Flatulence [Unknown]
  - Anal ulcer [Unknown]
  - Haemorrhoids [Unknown]
